FAERS Safety Report 13710281 (Version 1)
Quarter: 2017Q3

REPORT INFORMATION
  Report Type: Spontaneous
  Country: US (occurrence: US)
  Receive Date: 20170703
  Receipt Date: 20170703
  Transmission Date: 20171127
  Serious: No
  Sender: FDA-Public Use
  Company Number: US-ACTELION-A-NJ2017-154661

PATIENT
  Age: 80 Year
  Sex: Female

DRUGS (10)
  1. ADEMPAS [Concomitant]
     Active Substance: RIOCIGUAT
  2. ALLOPURINOL. [Concomitant]
     Active Substance: ALLOPURINOL
  3. NEXIUM [Concomitant]
     Active Substance: ESOMEPRAZOLE MAGNESIUM
  4. LASIX [Concomitant]
     Active Substance: FUROSEMIDE
  5. OPSUMIT [Suspect]
     Active Substance: MACITENTAN
     Indication: PULMONARY ARTERIAL HYPERTENSION
     Dosage: 10 MG, QD
     Route: 048
     Dates: start: 20170509
  6. TOPROL XL [Concomitant]
     Active Substance: METOPROLOL SUCCINATE
  7. PROAIR HFA [Concomitant]
     Active Substance: ALBUTEROL SULFATE
  8. XANAX [Concomitant]
     Active Substance: ALPRAZOLAM
  9. RANEXA [Concomitant]
     Active Substance: RANOLAZINE
  10. WARFARIN [Concomitant]
     Active Substance: WARFARIN

REACTIONS (6)
  - Oxygen saturation decreased [Not Recovered/Not Resolved]
  - Anaemia [Unknown]
  - Red blood cell count decreased [Not Recovered/Not Resolved]
  - Dizziness [Recovered/Resolved]
  - Presyncope [Recovered/Resolved]
  - Fall [Recovered/Resolved]

NARRATIVE: CASE EVENT DATE: 20170509
